FAERS Safety Report 15905266 (Version 2)
Quarter: 2020Q1

REPORT INFORMATION
  Report Type: Spontaneous
  Country: IT (occurrence: IT)
  Receive Date: 20190204
  Receipt Date: 20200228
  Transmission Date: 20200409
  Serious: Yes (Hospitalization, Other)
  Sender: FDA-Public Use
  Company Number: IT-MACLEODS PHARMACEUTICALS US LTD-MAC2019019886

PATIENT

DRUGS (1)
  1. LEVOFLOXACIN 500 MG [Suspect]
     Active Substance: LEVOFLOXACIN
     Indication: RESPIRATORY TRACT INFECTION
     Dosage: 500 MILLIGRAM, QD
     Route: 065
     Dates: start: 20161231, end: 20170103

REACTIONS (2)
  - VIth nerve paralysis [Recovered/Resolved]
  - Idiopathic intracranial hypertension [Recovered/Resolved]

NARRATIVE: CASE EVENT DATE: 201701
